FAERS Safety Report 10521183 (Version 2)
Quarter: 2015Q3

REPORT INFORMATION
  Report Type: Spontaneous
  Country: GH (occurrence: GH)
  Receive Date: 20141016
  Receipt Date: 20150819
  Transmission Date: 20151125
  Serious: Yes (Death, Other)
  Sender: FDA-Public Use
  Company Number: GH-ROCHE-1472667

PATIENT
  Age: 43 Year
  Sex: Female

DRUGS (2)
  1. HERCEPTIN [Suspect]
     Active Substance: TRASTUZUMAB
     Indication: HER-2 POSITIVE BREAST CANCER
     Dosage: 660MG START, THEN 510MG EVERY 3 WEEKS FOR 7 MONTHS
     Route: 042
  2. HERCEPTIN [Suspect]
     Active Substance: TRASTUZUMAB
     Dosage: LAST DOSE PRIOR TO SAE: 30/MAY/2012??660MG START, THEN 510MG EVERY 3 WEEKS FOR 7 MONTHS
     Route: 042

REACTIONS (3)
  - Cough [Unknown]
  - Metastases to bone [Fatal]
  - Headache [Unknown]
